FAERS Safety Report 13927931 (Version 2)
Quarter: 2017Q3

REPORT INFORMATION
  Report Type: Spontaneous
  Country: JP (occurrence: JP)
  Receive Date: 20170901
  Receipt Date: 20170905
  Transmission Date: 20171127
  Serious: Yes (Hospitalization, Other)
  Sender: FDA-Public Use
  Company Number: JP-OTSUKA-2017_018742

PATIENT
  Age: 84 Year
  Sex: Male

DRUGS (3)
  1. LASIX [Concomitant]
     Active Substance: FUROSEMIDE
     Indication: PRODUCT USED FOR UNKNOWN INDICATION
     Dosage: 60MG,UNKNOWN
     Route: 042
     Dates: start: 20170819, end: 20170819
  2. LASIX [Concomitant]
     Active Substance: FUROSEMIDE
     Dosage: 20MG,UNKNOWN
     Route: 042
     Dates: start: 20170825, end: 20170825
  3. SAMSCA [Suspect]
     Active Substance: TOLVAPTAN
     Indication: CARDIAC FAILURE CONGESTIVE
     Dosage: 15 MG, DAILY DOSE
     Route: 048
     Dates: start: 20170819, end: 20170820

REACTIONS (4)
  - Hepatic function abnormal [Recovering/Resolving]
  - Aspartate aminotransferase increased [Unknown]
  - Alanine aminotransferase increased [Unknown]
  - Blood lactate dehydrogenase increased [Unknown]

NARRATIVE: CASE EVENT DATE: 20170820
